FAERS Safety Report 9384815 (Version 1)
Quarter: 2013Q3

REPORT INFORMATION
  Report Type: Spontaneous
  Country: US (occurrence: US)
  Receive Date: 20130705
  Receipt Date: 20130705
  Transmission Date: 20140515
  Serious: No
  Sender: FDA-Public Use
  Company Number: US-PFIZER INC-2013196233

PATIENT
  Age: 78 Year
  Sex: Female

DRUGS (10)
  1. SUTENT [Suspect]
     Indication: RENAL CELL CARCINOMA
     Dosage: UNK
     Dates: start: 20130122
  2. AMBIEN CR [Concomitant]
     Dosage: UNK
  3. DOCUSATE SODIUM [Concomitant]
     Dosage: UNK
  4. AREDIA [Concomitant]
     Dosage: UNK
  5. FERROUS SULFATE [Concomitant]
     Dosage: UNK
  6. CHILDREN^S ASPIRIN [Concomitant]
     Dosage: UNK
  7. LEVOTHROID [Concomitant]
     Dosage: UNK
  8. VITAMIN B12 [Concomitant]
     Dosage: UNK
  9. CARVEDILOL [Concomitant]
     Dosage: UNK
  10. CLONIDINE HYDROCHLORIDE [Concomitant]
     Dosage: UNK

REACTIONS (1)
  - Back disorder [Unknown]
